FAERS Safety Report 24731474 (Version 1)
Quarter: 2024Q4

REPORT INFORMATION
  Report Type: Report from Study
  Country: CA (occurrence: CA)
  Receive Date: 20241213
  Receipt Date: 20241213
  Transmission Date: 20250115
  Serious: Yes (Other)
  Sender: SAMSUNG BIOEPIS
  Company Number: CA-SAMSUNG BIOEPIS-SB-2024-37239

PATIENT
  Age: 73 Year
  Sex: Female

DRUGS (2)
  1. ETANERCEPT [Suspect]
     Active Substance: ETANERCEPT
     Indication: Rheumatoid arthritis
     Dosage: 50MG/ML;
     Dates: start: 20240705
  2. TYLENOL [Concomitant]
     Active Substance: ACETAMINOPHEN
     Indication: Product used for unknown indication

REACTIONS (22)
  - Lymphoma [Unknown]
  - Myelofibrosis [Unknown]
  - Metastatic neoplasm [Unknown]
  - Mastocytosis [Unknown]
  - Lung cyst [Unknown]
  - White blood cell count decreased [Unknown]
  - Haemoglobin decreased [Unknown]
  - Haematocrit decreased [Unknown]
  - Mean cell haemoglobin decreased [Unknown]
  - Red cell distribution width increased [Unknown]
  - Eosinophil count increased [Unknown]
  - Red blood cell sedimentation rate increased [Unknown]
  - Blood iron decreased [Unknown]
  - Transferrin saturation decreased [Unknown]
  - Serum ferritin decreased [Unknown]
  - Protein urine present [Unknown]
  - White blood cells urine positive [Unknown]
  - Blood creatinine increased [Unknown]
  - Blood alkaline phosphatase increased [Unknown]
  - Blood immunoglobulin G increased [Unknown]
  - Blood immunoglobulin M increased [Unknown]
  - Red blood cell count decreased [Unknown]
